FAERS Safety Report 7022565-6 (Version None)
Quarter: 2010Q3

REPORT INFORMATION
  Report Type: 
  Country: None (occurrence: None)
  Receive Date: 20100930
  Receipt Date: 20100922
  Transmission Date: 20110219
  Serious: Yes (Hospitalization)
  Sender: FDA-Public Use
  Company Number: US-ABBOTT-10P-163-0655874-00

PATIENT
  Sex: Male
  Weight: 71.278 kg

DRUGS (2)
  1. HUMIRA [Suspect]
     Indication: PSORIATIC ARTHROPATHY
     Route: 058
     Dates: start: 20070101, end: 20090101
  2. HUMIRA [Suspect]
     Route: 058
     Dates: start: 20091201, end: 20100401

REACTIONS (6)
  - BLISTER [None]
  - DRUG INEFFECTIVE [None]
  - FURUNCLE [None]
  - KERATOSIS FOLLICULAR [None]
  - KNEE ARTHROPLASTY [None]
  - SKIN EXFOLIATION [None]
